FAERS Safety Report 9861844 (Version 1)
Quarter: 2014Q1

REPORT INFORMATION
  Report Type: Spontaneous
  Country: US (occurrence: US)
  Receive Date: 20140203
  Receipt Date: 20140203
  Transmission Date: 20141002
  Serious: Yes (Life-Threatening, Hospitalization)
  Sender: FDA-Public Use
  Company Number: US-PFIZER INC-2014026954

PATIENT
  Age: 53 Year
  Sex: Female
  Weight: 90.7 kg

DRUGS (8)
  1. PREMPRO [Suspect]
     Indication: MENOPAUSAL SYMPTOMS
     Dosage: UNK
     Dates: start: 20121113, end: 20131220
  2. LATUDA [Suspect]
     Indication: BIPOLAR DISORDER
     Dosage: 40 MG, 1X/DAY (HS, AT BEDTIME WITH FOOD)
     Route: 048
     Dates: start: 20131104, end: 20131203
  3. LATUDA [Suspect]
     Dosage: 80 MG, 1X/DAY (HS, AT BEDTIME WITH FOOD)
     Route: 048
     Dates: start: 20131203
  4. LATUDA [Suspect]
     Dosage: 40 MG, 1X/DAY
  5. TRAZODONE [Concomitant]
     Dosage: UNK
  6. WELLBUTRIN [Concomitant]
     Dosage: UNK
  7. XANAX [Concomitant]
     Dosage: UNK
  8. CLONIDINE [Concomitant]
     Dosage: UNK

REACTIONS (1)
  - Pulmonary embolism [Unknown]
